FAERS Safety Report 5679760-8 (Version None)
Quarter: 2008Q1

REPORT INFORMATION
  Report Type: 
  Country: None (occurrence: None)
  Receive Date: 20080324
  Receipt Date: 20080318
  Transmission Date: 20080703
  Serious: Yes (Other)
  Sender: FDA-Public Use
  Company Number: 2008SP005499

PATIENT
  Age: 36 Year
  Sex: Female
  Weight: 57.1532 kg

DRUGS (2)
  1. PEG-INTRON [Suspect]
     Indication: HEPATITIS C
     Dosage: SC
     Route: 058
     Dates: start: 20080107
  2. RIBAVIRIN [Suspect]
     Indication: HEPATITIS C
     Dosage: PO
     Route: 048
     Dates: start: 20080107

REACTIONS (17)
  - ANOREXIA [None]
  - ASTHENIA [None]
  - BLOOD BLISTER [None]
  - CONTUSION [None]
  - DYSPEPSIA [None]
  - EAR PAIN [None]
  - EPISTAXIS [None]
  - FALL [None]
  - FLUID INTAKE REDUCED [None]
  - HYPOTONIA [None]
  - LIMB DISCOMFORT [None]
  - MALAISE [None]
  - MIGRAINE [None]
  - PAIN [None]
  - PARAESTHESIA [None]
  - PLATELET COUNT DECREASED [None]
  - WEIGHT DECREASED [None]
